FAERS Safety Report 15710169 (Version 2)
Quarter: 2018Q4

REPORT INFORMATION
  Report Type: Report from Study
  Country: None (occurrence: US)
  Receive Date: 20181211
  Receipt Date: 20181215
  Transmission Date: 20190205
  Serious: Yes (Hospitalization, Other)
  Sender: FDA-Public Use
  Company Number: US-ABBVIE-18S-163-2580334-00

PATIENT
  Age: 52 Year
  Sex: Female
  Weight: 62.65 kg

DRUGS (3)
  1. BENADRYL [Concomitant]
     Active Substance: DIPHENHYDRAMINE HYDROCHLORIDE
     Indication: HYPERSENSITIVITY
  2. DEPAKOTE ER [Suspect]
     Active Substance: DIVALPROEX SODIUM
     Indication: SEIZURE
     Route: 048
     Dates: start: 2003
  3. FLONASE [Concomitant]
     Active Substance: FLUTICASONE PROPIONATE
     Indication: HYPERSENSITIVITY

REACTIONS (8)
  - Sinusitis [Not Recovered/Not Resolved]
  - Macrocytosis [Not Recovered/Not Resolved]
  - Seizure [Recovered/Resolved]
  - Frequent bowel movements [Recovered/Resolved]
  - Full blood count decreased [Unknown]
  - Pneumonia [Unknown]
  - Constipation [Recovered/Resolved]
  - Myelodysplastic syndrome [Not Recovered/Not Resolved]

NARRATIVE: CASE EVENT DATE: 201511
